FAERS Safety Report 5203403-0 (Version None)
Quarter: 2007Q1

REPORT INFORMATION
  Report Type: 
  Country: None (occurrence: None)
  Receive Date: 20070105
  Receipt Date: 20061229
  Transmission Date: 20070707
  Serious: Yes (Other)
  Sender: FDA-Public Use
  Company Number: 2007AL000006

PATIENT
  Age: 57 Year
  Sex: Female

DRUGS (8)
  1. MIRTAZAPINE [Suspect]
     Indication: DEPRESSION
     Dosage: 15 MG;QD;PO
     Route: 048
     Dates: start: 20061116, end: 20061128
  2. RAMIPRIL [Concomitant]
  3. ASPIRIN [Concomitant]
  4. DULOXETINE [Concomitant]
  5. FRUSEMIDE [Concomitant]
  6. BISOPROLOL FUMARATE [Concomitant]
  7. ATORVASTATIN CALCIUM [Concomitant]
  8. KLIOFEM [Concomitant]

REACTIONS (6)
  - FLUID RETENTION [None]
  - HEADACHE [None]
  - HYPOMANIA [None]
  - OEDEMA PERIPHERAL [None]
  - ORTHOSTATIC HYPOTENSION [None]
  - PULMONARY OEDEMA [None]
